FAERS Safety Report 8328188-0 (Version None)
Quarter: 2012Q2

REPORT INFORMATION
  Report Type: 
  Country: None (occurrence: None)
  Receive Date: 20120502
  Receipt Date: 20120426
  Transmission Date: 20120825
  Serious: Yes (Other)
  Sender: FDA-Public Use
  Company Number: JP-PFIZER INC-2012103950

PATIENT
  Age: 85 Year
  Sex: Female

DRUGS (2)
  1. LYRICA [Suspect]
     Indication: PAIN IN EXTREMITY
     Dosage: 150 MG, UNK
     Route: 048
     Dates: start: 20120410, end: 20120418
  2. LYRICA [Suspect]
     Dosage: 75 MG, UNK
     Dates: end: 20120409

REACTIONS (1)
  - BRADYCARDIA [None]
